FAERS Safety Report 15741914 (Version 2)
Quarter: 2018Q4

REPORT INFORMATION
  Report Type: Report from Study
  Country: None (occurrence: AT)
  Receive Date: 20181219
  Receipt Date: 20181227
  Transmission Date: 20190205
  Serious: Yes (Death, Hospitalization)
  Sender: FDA-Public Use
  Company Number: AT-ABBVIE-18P-009-2594666-00

PATIENT
  Age: 80 Year
  Sex: Female
  Weight: 68 kg

DRUGS (7)
  1. HUMIRA [Suspect]
     Active Substance: ADALIMUMAB
     Indication: PSORIASIS
     Route: 058
     Dates: start: 20091015
  2. HUMIRA [Suspect]
     Active Substance: ADALIMUMAB
     Route: 058
     Dates: start: 201803, end: 20180515
  3. CONCOR COR [Concomitant]
     Active Substance: BISOPROLOL FUMARATE
     Indication: HYPERTENSION
     Dosage: 1-0-0
     Route: 048
     Dates: start: 2009
  4. LOSARTAN/HCT GL [Concomitant]
     Indication: HYPERTENSION
     Dosage: 50MG/12.5 MG; 1/2-0-0
     Route: 048
     Dates: start: 2009
  5. THIAMAZOL [Concomitant]
     Active Substance: METHIMAZOLE
     Indication: HYPERTHYROIDISM
     Dosage: 1/4-0-0
     Route: 048
     Dates: start: 2009
  6. METFORMIN [Concomitant]
     Active Substance: METFORMIN HYDROCHLORIDE
     Indication: DIABETES MELLITUS
     Dosage: 1/2-0-1/2
     Route: 048
     Dates: start: 2009
  7. MIXTARD30 INSULIN FERTIGPEN [Concomitant]
     Indication: DIABETES MELLITUS
     Dosage: 28-0-10U
     Route: 058
     Dates: start: 2009

REACTIONS (2)
  - Urinary tract infection [Recovered/Resolved]
  - Lung neoplasm malignant [Fatal]

NARRATIVE: CASE EVENT DATE: 20180419
